FAERS Safety Report 6774048-6 (Version None)
Quarter: 2010Q2

REPORT INFORMATION
  Report Type: 
  Country: None (occurrence: None)
  Receive Date: 20100616
  Receipt Date: 20100616
  Transmission Date: 20101027
  Serious: Yes (Hospitalization, Other)
  Sender: FDA-Public Use
  Company Number: None

PATIENT
  Age: 65 Year
  Sex: Female
  Weight: 74.8435 kg

DRUGS (1)
  1. ACTONEL [Suspect]
     Indication: BONE DENSITY DECREASED
     Dosage: 150 MG 1 PER MONTH PO
     Route: 048
     Dates: start: 20100301, end: 20100301

REACTIONS (17)
  - ARTHRALGIA [None]
  - BONE DENSITY DECREASED [None]
  - CHILLS [None]
  - COLD SWEAT [None]
  - DEPRESSION [None]
  - FEELING ABNORMAL [None]
  - MALAISE [None]
  - NASOPHARYNGITIS [None]
  - NAUSEA [None]
  - ORAL CANDIDIASIS [None]
  - PAIN IN EXTREMITY [None]
  - POLYMYALGIA RHEUMATICA [None]
  - PYREXIA [None]
  - RETCHING [None]
  - SWELLING [None]
  - SWELLING FACE [None]
  - TEMPORAL ARTERITIS [None]
